FAERS Safety Report 8029467-7 (Version None)
Quarter: 2012Q1

REPORT INFORMATION
  Report Type: 
  Country: None (occurrence: None)
  Receive Date: 20120108
  Receipt Date: 20111101
  Transmission Date: 20120608
  Serious: Yes (Hospitalization, Other)
  Sender: FDA-Public Use
  Company Number: PHHY2011EE114697

PATIENT
  Sex: Female
  Weight: 145 kg

DRUGS (6)
  1. DOSTINEX [Concomitant]
     Indication: ACROMEGALY
     Dosage: 0.5 MG, IN TWO WEEKS
     Route: 065
     Dates: start: 20101101
  2. SANDOSTATIN LAR [Suspect]
     Dosage: 30 MG, UNK
     Route: 030
     Dates: start: 20110126
  3. OMACOR [Concomitant]
     Indication: HYPERCHOLESTEROLAEMIA
     Dosage: 1000 MG, UNK
     Route: 065
     Dates: start: 20110617
  4. LEVOTHYROXINE SODIUM [Concomitant]
     Indication: SECONDARY HYPOTHYROIDISM
     Dosage: 100 UG, UNK
     Route: 065
     Dates: start: 20101101
  5. MICARDIS [Concomitant]
     Indication: HYPERTENSION
     Dosage: 80 MG, UNK
     Route: 065
     Dates: start: 20110521
  6. MINIRIN [Concomitant]
     Indication: DIABETES MELLITUS
     Dosage: 0.1 MG *2
     Route: 065
     Dates: start: 20100521

REACTIONS (3)
  - VISUAL PATHWAY DISORDER [None]
  - ACROMEGALY [None]
  - NEOPLASM PROGRESSION [None]
